FAERS Safety Report 4866569-8 (Version None)
Quarter: 2005Q4

REPORT INFORMATION
  Report Type: 
  Country: None (occurrence: None)
  Receive Date: 20051227
  Receipt Date: 20051216
  Transmission Date: 20060501
  Serious: Yes (Death)
  Sender: FDA-Public Use
  Company Number: JP-JNJFOC-20051003750

PATIENT
  Sex: Male

DRUGS (11)
  1. DUROTEP [Suspect]
     Indication: CANCER PAIN
     Route: 062
     Dates: start: 20051017, end: 20051023
  2. SENNOSIDE [Concomitant]
     Indication: CONSTIPATION
     Dosage: 2 DOSAGE FORM/DAY
     Route: 048
     Dates: end: 20051020
  3. NIFEDIPINE [Concomitant]
  4. FAMOTIDINE [Concomitant]
     Route: 048
  5. VALSARTAN [Concomitant]
  6. BISOPROLOL FUMARATE [Concomitant]
  7. TIAPRIDE HYDROCHLORIDE [Concomitant]
  8. BROTIZOLAM [Concomitant]
  9. DICLOFENAC SODIUM [Concomitant]
  10. OXYCODONE HCL [Concomitant]
     Route: 048
  11. OXYCODONE HCL [Concomitant]
     Route: 048

REACTIONS (5)
  - APNOEA [None]
  - GENERAL PHYSICAL HEALTH DETERIORATION [None]
  - OXYGEN SATURATION DECREASED [None]
  - RESPIRATORY DEPRESSION [None]
  - RESPIRATORY FAILURE [None]
